FAERS Safety Report 5146722-9 (Version None)
Quarter: 2006Q4

REPORT INFORMATION
  Report Type: 
  Country: None (occurrence: None)
  Receive Date: 20061109
  Receipt Date: 20060807
  Transmission Date: 20070319
  Serious: Yes (Hospitalization)
  Sender: FDA-Public Use
  Company Number: ES-ELI_LILLY_AND_COMPANY-ES200608001726

PATIENT
  Age: 73 Year
  Sex: Female

DRUGS (1)
  1. FORTEO [Suspect]
     Dosage: 20 UG, DAILY (1/D)
     Route: 058
     Dates: start: 20060620, end: 20060704

REACTIONS (5)
  - ARRHYTHMIA [None]
  - DYSPNOEA [None]
  - HEPATOMEGALY [None]
  - HYPERTENSION [None]
  - PULMONARY OEDEMA [None]
